FAERS Safety Report 4424693-8 (Version None)
Quarter: 2004Q3

REPORT INFORMATION
  Report Type: 
  Country: None (occurrence: None)
  Receive Date: 20040809
  Receipt Date: 20040729
  Transmission Date: 20050211
  Serious: No
  Sender: FDA-Public Use
  Company Number: 2004UW16160

PATIENT
  Sex: 0

DRUGS (1)
  1. SEROQUEL [Suspect]

REACTIONS (1)
  - COLITIS ISCHAEMIC [None]
